FAERS Safety Report 7446536-0 (Version None)
Quarter: 2011Q2

REPORT INFORMATION
  Report Type: 
  Country: None (occurrence: None)
  Receive Date: 20110429
  Receipt Date: 20110427
  Transmission Date: 20111010
  Serious: Yes (Other)
  Sender: FDA-Public Use
  Company Number: US-PFIZER INC-2010060816

PATIENT
  Sex: Female
  Weight: 56.236 kg

DRUGS (7)
  1. VESICARE [Suspect]
  2. BISOPROLOL [Concomitant]
     Dosage: 5 MG, 2X/DAY
     Route: 048
     Dates: start: 20071001
  3. DETROL [Suspect]
  4. ADVIL LIQUI-GELS [Concomitant]
     Indication: ARTHRITIS
     Dosage: 200 MG, 2X/DAY
     Route: 048
  5. DETROL LA [Suspect]
     Indication: POLLAKIURIA
     Dosage: 4 MG, 1X/DAY
     Route: 048
     Dates: end: 20110401
  6. DETROL LA [Suspect]
     Indication: INCONTINENCE
  7. VALSARTAN [Concomitant]
     Indication: HYPERTENSION
     Dosage: 40 MG, AS NEEDED
     Route: 048

REACTIONS (7)
  - VULVOVAGINAL DRYNESS [None]
  - DRUG INEFFECTIVE [None]
  - CARDIAC PACEMAKER INSERTION [None]
  - DRY THROAT [None]
  - BLOOD PRESSURE INCREASED [None]
  - BLOOD PRESSURE DECREASED [None]
  - DIARRHOEA [None]
